FAERS Safety Report 6176804-4 (Version None)
Quarter: 2009Q2

REPORT INFORMATION
  Report Type: 
  Country: None (occurrence: None)
  Receive Date: 20090501
  Receipt Date: 20090416
  Transmission Date: 20091009
  Serious: Yes (Other)
  Sender: FDA-Public Use
  Company Number: US-PFIZER INC-2009197905

PATIENT
  Sex: Female
  Weight: 101.15 kg

DRUGS (7)
  1. CHANTIX [Suspect]
     Indication: SMOKING CESSATION THERAPY
     Dosage: UNK
     Dates: start: 20090324
  2. GEODON [Suspect]
     Indication: BIPOLAR DISORDER
     Dosage: 40 MG, 2X/DAY
     Dates: start: 20090324
  3. PROZAC [Concomitant]
     Dosage: UNK
  4. WELLBUTRIN [Concomitant]
     Dosage: UNK
  5. DEPAKOTE [Concomitant]
     Dosage: UNK
  6. ACETYLSALICYLIC ACID [Concomitant]
     Dosage: UNK
  7. DARVOCET [Concomitant]
     Dosage: UNK

REACTIONS (2)
  - DEPRESSION [None]
  - VIOLENCE-RELATED SYMPTOM [None]
